FAERS Safety Report 8218681-3 (Version None)
Quarter: 2012Q1

REPORT INFORMATION
  Report Type: 
  Country: None (occurrence: None)
  Receive Date: 20120319
  Receipt Date: 20120305
  Transmission Date: 20120608
  Serious: Yes (Other)
  Sender: FDA-Public Use
  Company Number: PHHY2011BR23594

PATIENT
  Sex: Male

DRUGS (3)
  1. EXELON [Suspect]
     Dosage: 9.5 MG/24 HS
     Route: 062
  2. EXELON [Suspect]
     Dosage: 4.6 MG/24 HS
     Route: 062
  3. TRILEPTAL [Suspect]

REACTIONS (16)
  - APPLICATION SITE BLEEDING [None]
  - APPLICATION SITE SWELLING [None]
  - HYPERSENSITIVITY [None]
  - IRRITABILITY [None]
  - URTICARIA [None]
  - ACNE [None]
  - APPLICATION SITE PUSTULES [None]
  - SWELLING [None]
  - APPLICATION SITE PRURITUS [None]
  - AGITATION [None]
  - APPLICATION SITE DISCOLOURATION [None]
  - APPLICATION SITE HYPERSENSITIVITY [None]
  - NERVOUSNESS [None]
  - APPLICATION SITE IRRITATION [None]
  - APPLICATION SITE VESICLES [None]
  - APPLICATION SITE ERYTHEMA [None]
